FAERS Safety Report 4498511-6 (Version None)
Quarter: 2004Q4

REPORT INFORMATION
  Report Type: 
  Country: None (occurrence: None)
  Receive Date: 20041105
  Receipt Date: 20041021
  Transmission Date: 20050328
  Serious: Yes (Other)
  Sender: FDA-Public Use
  Company Number: DSA_80659_2004

PATIENT
  Age: 34 Year
  Sex: Female
  Weight: 93.8946 kg

DRUGS (30)
  1. XYREM [Suspect]
     Indication: NARCOLEPSY
     Dosage: 6 G NIGHTLY PO
     Route: 048
     Dates: start: 20040520, end: 20040524
  2. XYREM [Suspect]
     Indication: NARCOLEPSY
     Dosage: 4.5 G NIGHTLY PO
     Route: 048
     Dates: start: 20040413, end: 20040520
  3. XYREM [Suspect]
     Indication: NARCOLEPSY
     Dosage: 6 G NIGHTLY PO
     Route: 048
     Dates: start: 20040101
  4. XYREM [Suspect]
     Indication: NARCOLEPSY
     Dosage: 9 G NIGHTLY PO
     Route: 048
  5. POTASSIUM [Concomitant]
  6. ATIVAN [Concomitant]
  7. ZYRTEC-D 12 HOUR [Concomitant]
  8. EFFEXOR XR [Concomitant]
  9. LEVSIN PB [Concomitant]
  10. TOPROL-XL [Concomitant]
  11. FLONASE [Concomitant]
  12. FLOVENT [Concomitant]
  13. SEREVENT [Concomitant]
  14. ALBUTEROL [Concomitant]
  15. PATENOL [Concomitant]
  16. DONNATAL EXTENTABS [Concomitant]
  17. CHOLESTYRAMINE POWDER [Concomitant]
  18. TRAMADOL HCL [Concomitant]
  19. HYDROCHLOROTHIAZIDE [Concomitant]
  20. JOINT SUPPORT COMPLEX [Concomitant]
  21. CRANTRATE [Concomitant]
  22. FOLIC ACID [Concomitant]
  23. CALCIUM [Concomitant]
  24. ACIDOPHILUS   ZYMA [Concomitant]
  25. CENTRUM [Concomitant]
  26. SALINE NASAL SPRAY [Concomitant]
  27. HYLAGAN [Concomitant]
  28. ADVAIR DISKUS 100/50 [Concomitant]
  29. EFFEXOR XR [Concomitant]
  30. CARBIDOPA [Concomitant]

REACTIONS (8)
  - ERYTHEMA [None]
  - GINGIVAL BLEEDING [None]
  - HYPOKALAEMIA [None]
  - RASH MACULAR [None]
  - SCRATCH [None]
  - SKIN BURNING SENSATION [None]
  - SWELLING [None]
  - THROAT TIGHTNESS [None]
